FAERS Safety Report 6008482-9 (Version None)
Quarter: 2008Q4

REPORT INFORMATION
  Report Type: 
  Country: None (occurrence: None)
  Receive Date: 20081217
  Receipt Date: 20080104
  Transmission Date: 20090506
  Serious: No
  Sender: FDA-Public Use
  Company Number: US-AMGEN-KDL259219

PATIENT
  Sex: Female

DRUGS (3)
  1. ENBREL [Suspect]
     Indication: PSORIATIC ARTHROPATHY
     Route: 058
     Dates: start: 20060104
  2. METHOTREXATE [Concomitant]
     Dates: start: 20060101
  3. IBUPROFEN [Concomitant]

REACTIONS (3)
  - EPISTAXIS [None]
  - HAEMATOCHEZIA [None]
  - TOOTH INFECTION [None]
